FAERS Safety Report 9230467 (Version 1)
Quarter: 2013Q2

REPORT INFORMATION
  Report Type: Spontaneous
  Country: US (occurrence: US)
  Receive Date: 20130415
  Receipt Date: 20130415
  Transmission Date: 20140414
  Serious: Yes (Hospitalization, Other)
  Sender: FDA-Public Use
  Company Number: US-PFIZER INC-2013115349

PATIENT
  Age: 72 Year
  Sex: Male

DRUGS (5)
  1. XALKORI [Suspect]
     Indication: LUNG ADENOCARCINOMA STAGE IV
     Dosage: 250 MG, 2X/DAY
  2. LISINOPRIL [Suspect]
     Dosage: 10 MG, 1X/DAY
  3. SIMVASTATIN [Suspect]
     Dosage: 400 MG, 1X/DAY
  4. DILTIAZEM [Suspect]
     Dosage: UNK, 1X/DAY (240 ONE DAILY)
  5. LASIX [Suspect]
     Dosage: 20 MG, 1X/DAY

REACTIONS (9)
  - Nausea [Recovered/Resolved]
  - Vomiting [Recovered/Resolved]
  - Diarrhoea [Unknown]
  - Dehydration [Recovered/Resolved]
  - Hypotension [Unknown]
  - Renal failure acute [Recovered/Resolved]
  - Vasogenic cerebral oedema [Unknown]
  - Disease progression [Unknown]
  - Lung adenocarcinoma stage IV [Unknown]
